FAERS Safety Report 5691820-4 (Version None)
Quarter: 2008Q1

REPORT INFORMATION
  Report Type: 
  Country: None (occurrence: None)
  Receive Date: 20080331
  Receipt Date: 20080318
  Transmission Date: 20080703
  Serious: Yes (Hospitalization)
  Sender: FDA-Public Use
  Company Number: 230032M08USA

PATIENT
  Age: 40 Year
  Sex: Female

DRUGS (2)
  1. REBIF [Suspect]
     Indication: MULTIPLE SCLEROSIS
     Dosage: 22 MCG, 3 IN 1 WEEKS, SUBCUTANEOUS
     Route: 058
     Dates: start: 20050101, end: 20080219
  2. IMITREX [Concomitant]

REACTIONS (7)
  - INFLUENZA LIKE ILLNESS [None]
  - INJECTION SITE CELLULITIS [None]
  - MIGRAINE [None]
  - MUSCLE SPASTICITY [None]
  - NAUSEA [None]
  - NONSPECIFIC REACTION [None]
  - RASH [None]
